FAERS Safety Report 6366992-9 (Version None)
Quarter: 2009Q3

REPORT INFORMATION
  Report Type: 
  Country: None (occurrence: None)
  Receive Date: 20090921
  Receipt Date: 20090914
  Transmission Date: 20100115
  Serious: Yes (Hospitalization, Other)
  Sender: FDA-Public Use
  Company Number: US-BAYER-200835196NA

PATIENT
  Age: 37 Year
  Sex: Female
  Weight: 52 kg

DRUGS (1)
  1. MIRENA [Suspect]
     Indication: MENSTRUATION IRREGULAR
     Dosage: 20UG/ DAY CONTINUOUS
     Route: 015
     Dates: start: 20040101

REACTIONS (2)
  - CYSTOSARCOMA PHYLLODES [None]
  - FIBROADENOMA OF BREAST [None]
